FAERS Safety Report 7677695-2 (Version None)
Quarter: 2011Q3

REPORT INFORMATION
  Report Type: 
  Country: None (occurrence: None)
  Receive Date: 20110811
  Receipt Date: 20110729
  Transmission Date: 20111222
  Serious: Yes (Other)
  Sender: FDA-Public Use
  Company Number: PHHY2011AU60641

PATIENT
  Sex: Female

DRUGS (1)
  1. TEGRETOL [Suspect]
     Dosage: 200 MG MORNING AND 300 MG NIGHT
     Route: 048

REACTIONS (6)
  - DYSPHONIA [None]
  - ABDOMINAL PAIN [None]
  - CHEST DISCOMFORT [None]
  - SWOLLEN TONGUE [None]
  - LIP SWELLING [None]
  - DYSPNOEA [None]
